FAERS Safety Report 24868219 (Version 3)
Quarter: 2025Q1

REPORT INFORMATION
  Report Type: Report from Study
  Country: US (occurrence: US)
  Receive Date: 20250121
  Receipt Date: 20250310
  Transmission Date: 20250409
  Serious: Yes (Death)
  Sender: AMGEN
  Company Number: US-AMGEN-USANI2025009037

PATIENT
  Age: 63 Year
  Sex: Male

DRUGS (1)
  1. TARLATAMAB [Suspect]
     Active Substance: TARLATAMAB
     Indication: Prostate cancer
     Route: 040
     Dates: start: 20250109, end: 20250109

REACTIONS (1)
  - Cytokine release syndrome [Fatal]

NARRATIVE: CASE EVENT DATE: 20250109
